FAERS Safety Report 26008679 (Version 1)
Quarter: 2025Q4

REPORT INFORMATION
  Report Type: Report from Study
  Country: US (occurrence: US)
  Receive Date: 20251106
  Receipt Date: 20251106
  Transmission Date: 20260118
  Serious: Yes (Other)
  Sender: ABBVIE
  Company Number: US-ABBVIE-6534015

PATIENT
  Age: 53 Year
  Sex: Female

DRUGS (3)
  1. VENETOCLAX [Suspect]
     Active Substance: VENETOCLAX
     Indication: Acute myeloid leukaemia
     Dosage: 100 MG PER DAY FOR 8 DAYS FOR FIRST 28-DAYS CYCLE. LAST ADMINISTRATION IN 2025
     Route: 048
     Dates: start: 20250830
  2. VENETOCLAX [Suspect]
     Active Substance: VENETOCLAX
     Indication: Acute myeloid leukaemia
     Dosage: 100 MG PER DAY FOR 5 DAYS FOR SECOND 13 DAYS CYCLE. FIRST ADMINISTRATION IN 2025
     Route: 048
     Dates: end: 20251001
  3. DECITABINE [Concomitant]
     Active Substance: DECITABINE
     Indication: Product used for unknown indication
     Dates: start: 20250830

REACTIONS (2)
  - Cerebrovascular accident [Unknown]
  - Therapeutic product effect incomplete [Unknown]

NARRATIVE: CASE EVENT DATE: 20250101
